FAERS Safety Report 7986906-5 (Version None)
Quarter: 2011Q4

REPORT INFORMATION
  Report Type: 
  Country: None (occurrence: None)
  Receive Date: 20111216
  Receipt Date: 20110523
  Transmission Date: 20120403
  Serious: No
  Sender: FDA-Public Use
  Company Number: US-BRISTOL-MYERS SQUIBB COMPANY-15592553

PATIENT
  Age: 36 Year
  Sex: Female

DRUGS (1)
  1. ABILIFY [Suspect]
     Indication: DEPRESSION
     Route: 048
     Dates: start: 20110204

REACTIONS (2)
  - DRY EYE [None]
  - BLISTER [None]
